FAERS Safety Report 24782723 (Version 1)
Quarter: 2024Q4

REPORT INFORMATION
  Report Type: Spontaneous
  Country: GB (occurrence: GB)
  Receive Date: 20241227
  Receipt Date: 20241227
  Transmission Date: 20250114
  Serious: Yes (Other)
  Sender: PFIZER
  Company Number: None

PATIENT
  Age: 75 Year
  Sex: Female

DRUGS (12)
  1. PIPERACILLIN SODIUM\TAZOBACTAM SODIUM [Suspect]
     Active Substance: PIPERACILLIN SODIUM\TAZOBACTAM SODIUM
     Indication: Liver abscess
     Dosage: 4.5 G, 3X/DAY
  2. ROSUVASTATIN [Concomitant]
     Active Substance: ROSUVASTATIN
     Dosage: 10 MG, 1X/DAY (AT BEDTIME)
     Dates: start: 20240905
  3. AZATHIOPRINE [Concomitant]
     Active Substance: AZATHIOPRINE
     Dosage: 75 MG, 2X/DAY (50MG+25MG TABLETS)
     Dates: start: 20240905
  4. RAMIPRIL [Concomitant]
     Active Substance: RAMIPRIL
     Dosage: 10 MG, 1X/DAY (AT LUNCHTIME)
     Dates: start: 20240905
  5. OMEPRAZOLE [Concomitant]
     Active Substance: OMEPRAZOLE
     Dosage: 20 MG, 1X/DAY (AT TEATIME)
     Dates: start: 20240905
  6. LACTULOSE [Concomitant]
     Active Substance: LACTULOSE
     Indication: Constipation
     Dosage: THREE 5 ML SPOONFULS TO BE TAKEN TWICE A DAY
     Route: 048
     Dates: start: 20240917
  7. PREDNISOLONE [Concomitant]
     Active Substance: PREDNISOLONE
     Dosage: 5 MG, 1X/DAY
     Dates: start: 20240905
  8. PREDNISOLONE [Concomitant]
     Active Substance: PREDNISOLONE
     Dosage: 5 MG, 2X/DAY-DOUBLED ATM WHILE UNWELL
     Dates: start: 20240905
  9. FELODIPINE/RAMIPRIL [Concomitant]
     Dosage: UNK
  10. ALENDRONIC ACID [Concomitant]
     Active Substance: ALENDRONIC ACID
     Dosage: 70 MG, WEEKLY (ON SUNDAY) - POD- SUSPENDED
     Dates: start: 20240905
  11. FOLIC ACID [Concomitant]
     Active Substance: FOLIC ACID
     Dosage: 5 MG, 1X/DAY (ABOUT 7 PM)
     Dates: start: 20240905
  12. CALCI D [Concomitant]
     Dosage: 1 DF, 1X/DAY (AT LUNCHTIME)
     Dates: start: 20240806

REACTIONS (1)
  - Clostridium difficile infection [Unknown]
